FAERS Safety Report 10750506 (Version 1)
Quarter: 2015Q1

REPORT INFORMATION
  Report Type: Spontaneous
  Country: US (occurrence: US)
  Receive Date: 20150130
  Receipt Date: 20150130
  Transmission Date: 20150721
  Serious: Yes (Other)
  Sender: FDA-Public Use
  Company Number: US-ASTRAZENECA-2015SE07878

PATIENT
  Age: 52 Year
  Sex: Female
  Weight: 65.8 kg

DRUGS (7)
  1. SYNTHROID [Concomitant]
     Active Substance: LEVOTHYROXINE SODIUM
     Indication: HYPOTHYROIDISM
     Route: 048
  2. VITAMIN D [Concomitant]
     Active Substance: CHOLECALCIFEROL
     Indication: VITAMIN D DEFICIENCY
     Route: 048
  3. KLONOPIN [Concomitant]
     Active Substance: CLONAZEPAM
     Indication: PALPITATIONS
     Route: 048
  4. CENTRUM [Concomitant]
     Active Substance: VITAMINS
     Indication: ILL-DEFINED DISORDER
     Dosage: EVERY MORNING
     Route: 048
  5. QUETIAPINE FUMARATE. [Suspect]
     Active Substance: QUETIAPINE FUMARATE
     Indication: SLEEP DISORDER
     Route: 048
     Dates: start: 2014
  6. KLONOPIN [Concomitant]
     Active Substance: CLONAZEPAM
     Indication: ANXIETY
     Route: 048
  7. ALIGN [Concomitant]
     Active Substance: BIFIDOBACTERIUM LONGUM SUBSP. INFANTIS
     Indication: DIARRHOEA
     Route: 048

REACTIONS (14)
  - Palpitations [Unknown]
  - Sinus disorder [Unknown]
  - Blood pressure fluctuation [Unknown]
  - Pain [Unknown]
  - Depression [Unknown]
  - Asthenia [Unknown]
  - Pallor [Unknown]
  - Abdominal pain [Unknown]
  - Fatigue [Unknown]
  - Suicidal ideation [Unknown]
  - Heart rate increased [Unknown]
  - Diarrhoea [Unknown]
  - Memory impairment [Unknown]
  - Product use issue [Unknown]

NARRATIVE: CASE EVENT DATE: 2014
